FAERS Safety Report 5147229-5 (Version None)
Quarter: 2006Q4

REPORT INFORMATION
  Report Type: 
  Country: None (occurrence: None)
  Receive Date: 20061102
  Receipt Date: 20061025
  Transmission Date: 20070319
  Serious: Yes (Other)
  Sender: FDA-Public Use
  Company Number: 2006BI011931

PATIENT
  Age: 65 Year
  Sex: Female

DRUGS (11)
  1. AVONEX [Suspect]
     Indication: MULTIPLE SCLEROSIS
     Dosage: 30 UG;QW;IM
     Route: 030
     Dates: start: 20000101, end: 20040901
  2. AMANTADINE HCL [Concomitant]
  3. RANITIDINE [Concomitant]
  4. ROXICET [Concomitant]
  5. BACLOFEN [Concomitant]
  6. LASIX [Concomitant]
  7. CALCIUM CARBONATE [Concomitant]
  8. ASPIRIN [Concomitant]
  9. POTASSIUM CHLORIDE [Concomitant]
  10. MULTI-VITAMIN [Concomitant]
  11. DOS [Concomitant]

REACTIONS (2)
  - BRAIN STEM SYNDROME [None]
  - HAEMANGIOMA [None]
